FAERS Safety Report 5901930-1 (Version None)
Quarter: 2008Q3

REPORT INFORMATION
  Report Type: 
  Country: None (occurrence: None)
  Receive Date: 20080929
  Receipt Date: 20080331
  Transmission Date: 20090109
  Serious: No
  Sender: FDA-Public Use
  Company Number: US-BRISTOL-MYERS SQUIBB COMPANY-14109516

PATIENT
  Age: 38 Year
  Sex: Female

DRUGS (3)
  1. BUSPAR [Suspect]
     Indication: ANXIETY
     Dosage: DRUG TAKEN FOR 6 WEEKS
     Route: 048
     Dates: start: 20080107
  2. BUSPAR [Suspect]
     Indication: DEPRESSION
     Dosage: DRUG TAKEN FOR 6 WEEKS
     Route: 048
     Dates: start: 20080107
  3. RITALIN [Concomitant]

REACTIONS (1)
  - TINNITUS [None]
